FAERS Safety Report 7519540-1 (Version None)
Quarter: 2011Q2

REPORT INFORMATION
  Report Type: 
  Country: None (occurrence: None)
  Receive Date: 20110524
  Receipt Date: 20110509
  Transmission Date: 20111010
  Serious: Yes (Hospitalization, Disabling)
  Sender: FDA-Public Use
  Company Number: AUR-APL-2011-01709

PATIENT
  Age: 5 Year
  Sex: Male

DRUGS (3)
  1. CLOBAZAM [Suspect]
  2. VALPROATE SODIUM [Suspect]
  3. LAMOTRIGINE [Suspect]

REACTIONS (11)
  - BRAIN HYPOXIA [None]
  - LEARNING DISORDER [None]
  - PNEUMONIA MYCOPLASMAL [None]
  - STATUS EPILEPTICUS [None]
  - FEBRILE CONVULSION [None]
  - APHASIA [None]
  - CEREBRAL ATROPHY [None]
  - AKINESIA [None]
  - CEREBRAL ISCHAEMIA [None]
  - BRAIN OEDEMA [None]
  - DYSTONIA [None]
